FAERS Safety Report 14516651 (Version 1)
Quarter: 2018Q1

REPORT INFORMATION
  Report Type: Spontaneous
  Country: FR (occurrence: FR)
  Receive Date: 20180212
  Receipt Date: 20180212
  Transmission Date: 20180509
  Serious: Yes (Hospitalization)
  Sender: FDA-Public Use
  Company Number: FR-ACCORD-063184

PATIENT
  Age: 62 Year
  Sex: Male

DRUGS (25)
  1. AMITRIPTYLINE [Suspect]
     Active Substance: AMITRIPTYLINE
  2. CYAMEMAZINE/CYAMEMAZINE TARTRATE [Suspect]
     Active Substance: CYAMEMAZINE
     Indication: AGITATION
  3. VERAPAMIL [Suspect]
     Active Substance: VERAPAMIL HYDROCHLORIDE
     Indication: HYPERTENSION
  4. HALOPERIDOL. [Suspect]
     Active Substance: HALOPERIDOL
  5. ZOLPIDEM [Suspect]
     Active Substance: ZOLPIDEM\ZOLPIDEM TARTRATE
     Indication: INSOMNIA
  6. BROMAZEPAM [Suspect]
     Active Substance: BROMAZEPAM
  7. CISATRACURIUM/CISATRACURIUM BESILATE [Concomitant]
     Active Substance: CISATRACURIUM BESYLATE
  8. AMIKACIN [Concomitant]
     Active Substance: AMIKACIN
  9. HYDROXYZINE [Suspect]
     Active Substance: HYDROXYZINE HYDROCHLORIDE
  10. PIPERACILLIN SODIUM/TAZOBACTAM SODIUM [Concomitant]
     Active Substance: PIPERACILLIN SODIUM\TAZOBACTAM SODIUM
  11. VANCOMYCIN [Concomitant]
     Active Substance: VANCOMYCIN
  12. NOREPINEPHRINE. [Concomitant]
     Active Substance: NOREPINEPHRINE
  13. PANTOPRAZOLE [Concomitant]
     Active Substance: PANTOPRAZOLE
  14. MIDAZOLAM [Suspect]
     Active Substance: MIDAZOLAM HYDROCHLORIDE
     Indication: SEDATION
  15. NORDAZEPAM [Suspect]
     Active Substance: NORDAZEPAM
  16. URAPIDIL [Concomitant]
     Active Substance: URAPIDIL
  17. OXAZEPAM. [Suspect]
     Active Substance: OXAZEPAM
  18. PREDNISOLONE. [Concomitant]
     Active Substance: PREDNISOLONE
  19. CLONAZEPAM. [Suspect]
     Active Substance: CLONAZEPAM
  20. ALPRAZOLAM. [Suspect]
     Active Substance: ALPRAZOLAM
  21. PARACETAMOL [Suspect]
     Active Substance: ACETAMINOPHEN
  22. CETIRIZINE [Suspect]
     Active Substance: CETIRIZINE HYDROCHLORIDE
  23. VENLAFAXINE/VENLAFAXINE HYDROCHLORIDE [Suspect]
     Active Substance: VENLAFAXINE HYDROCHLORIDE
  24. SUFENTANIL [Concomitant]
     Active Substance: SUFENTANIL
  25. HEPARIN [Concomitant]
     Active Substance: HEPARIN SODIUM

REACTIONS (8)
  - Toxicity to various agents [Unknown]
  - Physical assault [Unknown]
  - Nervous system disorder [Recovered/Resolved]
  - Tachycardia [Unknown]
  - Coma [Recovered/Resolved]
  - Hyperthermia [Unknown]
  - Hypotension [Unknown]
  - Disturbance in attention [Recovered/Resolved]
